FAERS Safety Report 19262894 (Version 1)
Quarter: 2021Q2

REPORT INFORMATION
  Report Type: Spontaneous
  Country: IN (occurrence: IN)
  Receive Date: 20210517
  Receipt Date: 20210517
  Transmission Date: 20210717
  Serious: Yes (Hospitalization, Other)
  Sender: FDA-Public Use
  Company Number: IN-EPICPHARMA-IN-2021EPCLIT00515

PATIENT
  Age: 28 Year
  Sex: Female

DRUGS (4)
  1. RINGER LACTATE [SODIUM LACTATE] [Concomitant]
     Active Substance: SODIUM LACTATE
     Indication: PRODUCT USED FOR UNKNOWN INDICATION
     Route: 065
  2. RANITIDINE. [Suspect]
     Active Substance: RANITIDINE
     Indication: PRODUCT USED FOR UNKNOWN INDICATION
     Route: 042
  3. MIDAZOLAM. [Interacting]
     Active Substance: MIDAZOLAM
     Indication: SUPPORTIVE CARE
     Route: 065
  4. PHENYTOIN. [Suspect]
     Active Substance: PHENYTOIN
     Indication: GENERALISED TONIC-CLONIC SEIZURE
     Route: 042

REACTIONS (8)
  - Nystagmus [Recovering/Resolving]
  - Drug interaction [Unknown]
  - Toxicity to various agents [Unknown]
  - Dysarthria [Recovering/Resolving]
  - Seizure [Recovering/Resolving]
  - Muscle twitching [Recovering/Resolving]
  - Blepharospasm [Recovering/Resolving]
  - Ataxia [Recovering/Resolving]
